FAERS Safety Report 9256002 (Version 1)
Quarter: 2013Q2

REPORT INFORMATION
  Report Type: Spontaneous
  Country: US (occurrence: US)
  Receive Date: 20130425
  Receipt Date: 20130425
  Transmission Date: 20140414
  Serious: No
  Sender: FDA-Public Use
  Company Number: US-TEVA-400586USA

PATIENT
  Sex: Female
  Weight: 59.02 kg

DRUGS (2)
  1. PROAIR HFA [Suspect]
     Indication: PROPHYLAXIS AGAINST BRONCHOSPASM
  2. ADVAIR [Concomitant]
     Indication: ASTHMA

REACTIONS (1)
  - Tooth loss [Not Recovered/Not Resolved]
